FAERS Safety Report 5068063-0 (Version None)
Quarter: 2006Q3

REPORT INFORMATION
  Report Type: 
  Country: None (occurrence: None)
  Receive Date: 20060717
  Receipt Date: 20060123
  Transmission Date: 20061208
  Serious: Yes (Hospitalization)
  Sender: FDA-Public Use
  Company Number: 2006000197

PATIENT
  Sex: Male

DRUGS (8)
  1. TARCEVA [Suspect]
     Indication: PANCREATIC CARCINOMA
     Dosage: 150 MG (QD), ORAL
     Route: 048
     Dates: start: 20060106, end: 20060110
  2. GEMZAR [Concomitant]
  3. ALTACE [Concomitant]
  4. HYDROCHLOROTHIAZIDE [Concomitant]
  5. NEURONTIN [Concomitant]
  6. METHADONE HCL [Concomitant]
  7. HYDROCODONE (HYDROCODONE) [Concomitant]
  8. TERAZOSIN (TERAZOSIN) [Concomitant]

REACTIONS (2)
  - PYREXIA [None]
  - RASH [None]
